FAERS Safety Report 21616136 (Version 1)
Quarter: 2022Q4

REPORT INFORMATION
  Report Type: Spontaneous
  Country: AR (occurrence: AR)
  Receive Date: 20221118
  Receipt Date: 20221118
  Transmission Date: 20230113
  Serious: Yes (Hospitalization)
  Sender: FDA-Public Use
  Company Number: AR-ELI_LILLY_AND_COMPANY-AR202211004535

PATIENT
  Age: 76 Year
  Sex: Female
  Weight: 78 kg

DRUGS (2)
  1. VERZENIO [Suspect]
     Active Substance: ABEMACICLIB
     Indication: Breast cancer
     Dosage: 200 MG, DAILY
     Route: 048
     Dates: start: 20200527, end: 20221005
  2. VERZENIO [Suspect]
     Active Substance: ABEMACICLIB
     Dosage: 200 MG, DAILY
     Route: 048
     Dates: start: 20221013

REACTIONS (2)
  - Rectal haemorrhage [Unknown]
  - Diverticulum [Unknown]

NARRATIVE: CASE EVENT DATE: 20221005
